FAERS Safety Report 18431094 (Version 1)
Quarter: 2020Q4

REPORT INFORMATION
  Report Type: Spontaneous
  Country: US (occurrence: US)
  Receive Date: 20201027
  Receipt Date: 20201027
  Transmission Date: 20210114
  Serious: No
  Sender: FDA-Public Use
  Company Number: None

PATIENT
  Sex: Female

DRUGS (1)
  1. AMBRISENTAN 10MG ZYDUS PHARMACEUTICALS USA [Suspect]
     Active Substance: AMBRISENTAN
     Indication: PULMONARY ARTERIAL HYPERTENSION
     Route: 048
     Dates: start: 20200921

REACTIONS (9)
  - Drug ineffective [None]
  - Tremor [None]
  - Administration site pain [None]
  - Administration site reaction [None]
  - Pyrexia [None]
  - Haemorrhage [None]
  - Administration site swelling [None]
  - Erythema [None]
  - Muscle spasms [None]
